FAERS Safety Report 16790280 (Version 1)
Quarter: 2019Q3

REPORT INFORMATION
  Report Type: Spontaneous
  Country: US (occurrence: US)
  Receive Date: 20190910
  Receipt Date: 20190910
  Transmission Date: 20191005
  Serious: No
  Sender: FDA-Public Use
  Company Number: US-ASTRAZENECA-2019SF24372

PATIENT
  Sex: Female

DRUGS (11)
  1. LLISINOPRIL [Suspect]
     Active Substance: LISINOPRIL
     Dosage: 20.0MG UNKNOWN
     Route: 048
  2. FARXIGA [Suspect]
     Active Substance: DAPAGLIFLOZIN PROPANEDIOL
     Indication: TYPE 2 DIABETES MELLITUS
     Dosage: 10.0MG UNKNOWN
     Route: 048
  3. APIXABAN [Concomitant]
     Active Substance: APIXABAN
  4. FEROUS SULPHATE [Concomitant]
  5. PRAVASTATIN. [Concomitant]
     Active Substance: PRAVASTATIN
  6. METOPROLOL TARTATE [Suspect]
     Active Substance: METOPROLOL TARTRATE
     Dosage: 50.0MG UNKNOWN
     Route: 048
  7. DIPHENOXYLATE [Concomitant]
     Active Substance: DIPHENOXYLATE
  8. GLARGINE INSULIN [Concomitant]
     Active Substance: INSULIN GLARGINE
  9. MERTAZAPINE [Concomitant]
     Active Substance: MIRTAZAPINE
  10. PIOGLITAZONE. [Concomitant]
     Active Substance: PIOGLITAZONE
  11. LISPRO INSULIN [Concomitant]
     Active Substance: INSULIN LISPRO

REACTIONS (1)
  - Diarrhoea [Unknown]
